FAERS Safety Report 19026166 (Version 2)
Quarter: 2021Q1

REPORT INFORMATION
  Report Type: Spontaneous
  Country: US (occurrence: US)
  Receive Date: 20210318
  Receipt Date: 20210323
  Transmission Date: 20210420
  Serious: Yes (Hospitalization, Other)
  Sender: FDA-Public Use
  Company Number: US-SUNOVION-2021SUN000868

PATIENT
  Sex: Male

DRUGS (2)
  1. HALDOL [Concomitant]
     Active Substance: HALOPERIDOL
  2. LATUDA [Suspect]
     Active Substance: LURASIDONE HYDROCHLORIDE
     Indication: SCHIZOAFFECTIVE DISORDER
     Dosage: 80 MG, BID
     Route: 048

REACTIONS (12)
  - Accident [Unknown]
  - Off label use [Unknown]
  - Diaphragmatic paralysis [Unknown]
  - Sluggishness [Unknown]
  - Malaise [Unknown]
  - Quadriplegia [Unknown]
  - Unresponsive to stimuli [Unknown]
  - Neck injury [Unknown]
  - Speech disorder [Unknown]
  - Agitation [Unknown]
  - Depression [Unknown]
  - Laziness [Unknown]
